FAERS Safety Report 12587058 (Version 1)
Quarter: 2016Q3

REPORT INFORMATION
  Report Type: Spontaneous
  Country: US (occurrence: US)
  Receive Date: 20160725
  Receipt Date: 20160725
  Transmission Date: 20161109
  Serious: No
  Sender: FDA-Public Use
  Company Number: US-MYLANLABS-2015M1013328

PATIENT
  Age: 60 Year

DRUGS (2)
  1. HYDROXYZINE HYDROCHLORIDE TABLETS, USP [Suspect]
     Active Substance: HYDROXYZINE HYDROCHLORIDE
     Indication: SLEEP DISORDER
     Dosage: 10 MG, QD
     Dates: start: 20150220, end: 20150326
  2. HYDROXYZINE HYDROCHLORIDE TABLETS, USP [Suspect]
     Active Substance: HYDROXYZINE HYDROCHLORIDE
     Indication: OFF LABEL USE

REACTIONS (1)
  - Drug ineffective for unapproved indication [Unknown]

NARRATIVE: CASE EVENT DATE: 20150220
